FAERS Safety Report 4998566-6 (Version None)
Quarter: 2006Q2

REPORT INFORMATION
  Report Type: 
  Country: None (occurrence: None)
  Receive Date: 20060508
  Receipt Date: 20060425
  Transmission Date: 20061013
  Serious: Yes (Death, Life-Threatening)
  Sender: FDA-Public Use
  Company Number: HQWYE026715DEC05

PATIENT
  Age: 77 Year
  Sex: Female

DRUGS (5)
  1. MYLOTARG [Suspect]
     Indication: ACUTE MYELOID LEUKAEMIA RECURRENT
     Dosage: 9 MG/M^2 1X PER 1 DAY INTRAVENOUS DRIP
     Route: 041
     Dates: start: 20051122, end: 20051122
  2. AMLODIPINE BESYLATE [Concomitant]
  3. BEPRIDIL HYDROCHLORIDE MONOHYDRATE (BEPRIDIL HYDROCHLORIDE MONOHYDRATE [Concomitant]
  4. DIOVAN [Concomitant]
  5. FAMOTIDINE [Concomitant]

REACTIONS (9)
  - FALL [None]
  - HAEMORRHAGE [None]
  - HEAD INJURY [None]
  - HYPOKALAEMIA [None]
  - NEUTROPHIL PERCENTAGE DECREASED [None]
  - OEDEMA DUE TO CARDIAC DISEASE [None]
  - PLATELET COUNT DECREASED [None]
  - SUBDURAL HAEMATOMA [None]
  - WHITE BLOOD CELL COUNT DECREASED [None]
